FAERS Safety Report 6388780-X (Version None)
Quarter: 2009Q4

REPORT INFORMATION
  Report Type: 
  Country: None (occurrence: None)
  Receive Date: 20091005
  Receipt Date: 20091001
  Transmission Date: 20100525
  Serious: Yes (Hospitalization)
  Sender: FDA-Public Use
  Company Number: FR-WYE-G04547709

PATIENT
  Age: 4 Year
  Sex: Female

DRUGS (2)
  1. ADVIL LIQUI-GELS [Suspect]
     Indication: VARICELLA
     Dosage: UNKNOWN
     Route: 048
     Dates: start: 20040101, end: 20040101
  2. ADVIL LIQUI-GELS [Suspect]
     Indication: PYREXIA

REACTIONS (7)
  - BETA HAEMOLYTIC STREPTOCOCCAL INFECTION [None]
  - CELLULITIS STREPTOCOCCAL [None]
  - CONDITION AGGRAVATED [None]
  - RASH SCARLATINIFORM [None]
  - STREPTOCOCCAL SEPSIS [None]
  - SUPERINFECTION BACTERIAL [None]
  - VARICELLA [None]
